FAERS Safety Report 5621235-6 (Version None)
Quarter: 2008Q1

REPORT INFORMATION
  Report Type: 
  Country: None (occurrence: None)
  Receive Date: 20080114
  Receipt Date: 20070412
  Transmission Date: 20080703
  Serious: Yes (Life-Threatening, Hospitalization, Disabling)
  Sender: FDA-Public Use
  Company Number: A03200702617

PATIENT
  Age: 76 Year
  Sex: Male
  Weight: 51.2565 kg

DRUGS (5)
  1. PLAVIX [Suspect]
     Indication: ANTICOAGULANT THERAPY
     Dosage: 75 MG QD - ORAL
     Route: 048
     Dates: start: 20050220, end: 20060101
  2. PLAVIX [Suspect]
     Indication: TRANSIENT ISCHAEMIC ATTACK
     Dosage: 75 MG QD - ORAL
     Route: 048
     Dates: start: 20050220, end: 20060101
  3. METOPROLOL TARTRATE [Concomitant]
  4. ACETYLSALICYLIC ACID SRT [Concomitant]
  5. CORTISONE [Concomitant]

REACTIONS (8)
  - INTESTINAL HAEMORRHAGE [None]
  - LARGE INTESTINAL HAEMORRHAGE [None]
  - LOSS OF CONSCIOUSNESS [None]
  - MELAENA [None]
  - MENTAL DISORDER [None]
  - RECTAL HAEMORRHAGE [None]
  - SUBDURAL HAEMATOMA [None]
  - ULCER HAEMORRHAGE [None]
